FAERS Safety Report 11722711 (Version 1)
Quarter: 2015Q4

REPORT INFORMATION
  Report Type: Spontaneous
  Country: US (occurrence: None)
  Receive Date: 20151110
  Receipt Date: 20151110
  Transmission Date: 20160304
  Serious: No
  Sender: FDA-Public Use
  Company Number: None

PATIENT
  Age: 23 Month
  Sex: Male
  Weight: 11.1 kg

DRUGS (8)
  1. DIPHENHYDRAMINE 50 MG/ML APP PHARMACEUTICALS, LLC [Suspect]
     Active Substance: DIPHENHYDRAMINE
     Indication: PRURITUS
     Dosage: 12.5 MG, INTRAVENOUS
     Route: 042
     Dates: start: 20150906, end: 20150906
  2. ONDANSETRON [Concomitant]
     Active Substance: ONDANSETRON
  3. DIPHENHYDRAMINE 50 MG/ML APP PHARMACEUTICALS, LLC [Suspect]
     Active Substance: DIPHENHYDRAMINE
     Indication: SLEEP DISORDER
     Dosage: 12.5 MG, INTRAVENOUS
     Route: 042
     Dates: start: 20150906, end: 20150906
  4. DIPHENHYDRAMINE 50 MG/ML APP PHARMACEUTICALS, LLC [Suspect]
     Active Substance: DIPHENHYDRAMINE
     Indication: NAUSEA
     Dosage: 12.5 MG, INTRAVENOUS
     Route: 042
     Dates: start: 20150906, end: 20150906
  5. LIDOCAINE. [Concomitant]
     Active Substance: LIDOCAINE
  6. ACETAMINOPHEN. [Concomitant]
     Active Substance: ACETAMINOPHEN
  7. D5W [Concomitant]
  8. SODIUM CHLORIDE BOLUS [Concomitant]

REACTIONS (2)
  - Injection site discolouration [None]
  - Urticaria [None]

NARRATIVE: CASE EVENT DATE: 20150906
